FAERS Safety Report 18649114 (Version 2)
Quarter: 2020Q4

REPORT INFORMATION
  Report Type: Spontaneous
  Country: GB (occurrence: GB)
  Receive Date: 20201222
  Receipt Date: 20201224
  Transmission Date: 20210114
  Serious: Yes (Hospitalization, Other)
  Sender: FDA-Public Use
  Company Number: GB-MYLANLABS-2020M1103453

PATIENT
  Age: 67 Year
  Sex: Male

DRUGS (3)
  1. AMPHOTERICIN B. [Suspect]
     Active Substance: AMPHOTERICIN B
     Indication: OTITIS EXTERNA
     Dosage: REPEATED TOPICAL INSERTIONS OF AMPHOTERICIN B-SOAKED RIBBON GAUZE TO THE LEFT EAR EVERY 3 DAYS
     Route: 061
  2. VORICONAZOLE. [Suspect]
     Active Substance: VORICONAZOLE
     Indication: ASPERGILLUS INFECTION
     Dosage: UNK
     Route: 048
  3. POSACONAZOLE [Suspect]
     Active Substance: POSACONAZOLE
     Indication: OTITIS EXTERNA
     Dosage: 300 MILLIGRAM, QD

REACTIONS (7)
  - Lethargy [Unknown]
  - Dysphagia [Unknown]
  - Product use issue [Unknown]
  - Off label use [Unknown]
  - Blindness unilateral [Unknown]
  - Choking sensation [Unknown]
  - Dysphonia [Unknown]
